FAERS Safety Report 14529359 (Version 1)
Quarter: 2018Q1

REPORT INFORMATION
  Report Type: Spontaneous
  Country: US (occurrence: US)
  Receive Date: 20180214
  Receipt Date: 20180214
  Transmission Date: 20180509
  Serious: Yes (Other)
  Sender: FDA-Public Use
  Company Number: US-ROCHE-2068066

PATIENT

DRUGS (2)
  1. ALIMTA [Concomitant]
     Active Substance: PEMETREXED DISODIUM
     Dosage: UNKNOWN
     Route: 065
  2. AVASTIN [Suspect]
     Active Substance: BEVACIZUMAB
     Indication: NON-SMALL CELL LUNG CANCER STAGE IV
     Route: 065

REACTIONS (1)
  - Glomerulonephritis [Unknown]
